FAERS Safety Report 4751877-1 (Version None)
Quarter: 2005Q3

REPORT INFORMATION
  Report Type: 
  Country: None (occurrence: None)
  Receive Date: 20050822
  Receipt Date: 20050506
  Transmission Date: 20060218
  Serious: No
  Sender: FDA-Public Use
  Company Number: PHEH2005US05236

PATIENT
  Age: 67 Year
  Sex: Female

DRUGS (2)
  1. ZELNORM [Suspect]
     Indication: ABDOMINAL PAIN UPPER
     Dosage: 6 MG, BID, ORAL
     Route: 048
     Dates: start: 20050419, end: 20050502
  2. ZELNORM [Suspect]
     Indication: ABDOMINAL PAIN UPPER
     Dosage: 6 MG, BID, ORAL
     Route: 048
     Dates: start: 20050505

REACTIONS (2)
  - ABDOMINAL PAIN UPPER [None]
  - FAECES DISCOLOURED [None]
